FAERS Safety Report 16078329 (Version 1)
Quarter: 2019Q2

REPORT INFORMATION
  Report Type: Spontaneous
  Country: US (occurrence: US)
  Receive Date: 20190315
  Receipt Date: 20190315
  Transmission Date: 20190711
  Serious: No
  Sender: FDA-Public Use
  Company Number: None

PATIENT
  Age: 40 Year
  Sex: Female
  Weight: 69.75 kg

DRUGS (1)
  1. BOTOX [Suspect]
     Active Substance: ONABOTULINUMTOXINA
     Indication: SKIN WRINKLING
     Dosage: ?          QUANTITY:20 UNITS;OTHER FREQUENCY:ONCE;?
     Route: 058
     Dates: start: 20190121, end: 20190121

REACTIONS (3)
  - Headache [None]
  - Product complaint [None]
  - Therapeutic product effect decreased [None]

NARRATIVE: CASE EVENT DATE: 20190131
